FAERS Safety Report 11508129 (Version 2)
Quarter: 2015Q4

REPORT INFORMATION
  Report Type: Report from Study
  Country: US (occurrence: US)
  Receive Date: 20150915
  Receipt Date: 20151006
  Transmission Date: 20160304
  Serious: Yes (Hospitalization, Other)
  Sender: FDA-Public Use
  Company Number: US-GILEAD-2015-0169391

PATIENT
  Age: 62 Year
  Sex: Male

DRUGS (1)
  1. AMBRISENTAN [Suspect]
     Active Substance: AMBRISENTAN
     Indication: PORTOPULMONARY HYPERTENSION
     Dosage: 5 MG, UNK
     Route: 065

REACTIONS (2)
  - Ocular hyperaemia [Unknown]
  - Coma [Unknown]
